FAERS Safety Report 5843911-2 (Version None)
Quarter: 2008Q3

REPORT INFORMATION
  Report Type: 
  Country: None (occurrence: None)
  Receive Date: 20080813
  Receipt Date: 20080805
  Transmission Date: 20090109
  Serious: Yes (Hospitalization)
  Sender: FDA-Public Use
  Company Number: US-AMGEN-QUU299464

PATIENT
  Sex: Female

DRUGS (1)
  1. ENBREL [Suspect]
     Indication: RHEUMATOID ARTHRITIS
     Route: 058
     Dates: start: 19990101

REACTIONS (6)
  - ELECTROLYTE IMBALANCE [None]
  - IMPAIRED HEALING [None]
  - OEDEMA PERIPHERAL [None]
  - SKIN LACERATION [None]
  - UPPER RESPIRATORY TRACT INFECTION [None]
  - WOUND INFECTION [None]
